FAERS Safety Report 21181813 (Version 7)
Quarter: 2024Q1

REPORT INFORMATION
  Report Type: Report from Study
  Country: BE (occurrence: BE)
  Receive Date: 20220806
  Receipt Date: 20240328
  Transmission Date: 20240410
  Serious: Yes (Hospitalization, Other)
  Sender: FDA-Public Use
  Company Number: None

PATIENT
  Age: 73 Year
  Sex: Female
  Weight: 79.2 kg

DRUGS (33)
  1. CARBOPLATIN [Suspect]
     Active Substance: CARBOPLATIN
     Indication: Small cell lung cancer extensive stage
     Dates: start: 20210715
  2. ETOPOSIDE [Suspect]
     Active Substance: ETOPOSIDE
     Indication: Small cell lung cancer extensive stage
     Dates: start: 20210715
  3. ATEZOLIZUMAB [Suspect]
     Active Substance: ATEZOLIZUMAB
     Indication: Small cell lung cancer extensive stage
     Dosage: RECEIVED BEFORE SIGNING THE INFORMED CONSENT
     Dates: start: 20210715
  4. NEULASTA [Concomitant]
     Active Substance: PEGFILGRASTIM
     Dates: start: 20210719, end: 20210917
  5. 3M CAVILON ANTIFUNGAL [Concomitant]
     Active Substance: MICONAZOLE NITRATE
     Dates: start: 20210916, end: 202109
  6. BILASTINE [Concomitant]
     Active Substance: BILASTINE
     Indication: Prophylaxis
     Dates: start: 202110, end: 202306
  7. MAGNESIUM [Concomitant]
     Active Substance: MAGNESIUM
     Dates: start: 20210716, end: 20210925
  8. NETUPITANT\PALONOSETRON HYDROCHLORIDE [Concomitant]
     Active Substance: NETUPITANT\PALONOSETRON HYDROCHLORIDE
     Dates: start: 20210715, end: 20210915
  9. BISOPROLOL [Concomitant]
     Active Substance: BISOPROLOL\BISOPROLOL FUMARATE
  10. ULTRA K [Concomitant]
     Dates: start: 20210728
  11. PERINDOPRIL [Concomitant]
     Active Substance: PERINDOPRIL
  12. AVELOX [Concomitant]
     Active Substance: MOXIFLOXACIN HYDROCHLORIDE
     Dates: start: 20211117, end: 20211121
  13. POTASSIUM CHLORIDE [Concomitant]
     Active Substance: POTASSIUM CHLORIDE
     Dates: start: 20210729, end: 20210730
  14. LEVOFLOXACIN [Concomitant]
     Active Substance: LEVOFLOXACIN
     Dates: start: 20210723, end: 20210726
  15. Beclometasone, Formoterol [Concomitant]
     Dates: start: 20210725
  16. GLUCONATE SODIUM, POTASSIUM CHLORIDE, SODIUM ACETATE, SODIUM CHLORIDE [Concomitant]
     Dates: start: 20210726, end: 20210727
  17. SODIUM CHLORIDE [Concomitant]
     Active Substance: SODIUM CHLORIDE
     Dates: start: 20210729, end: 20210730
  18. ASPIRIN [Concomitant]
     Active Substance: ASPIRIN
     Dates: start: 20210927, end: 20210927
  19. AMOXICILLIN\CLAVULANIC ACID [Concomitant]
     Active Substance: AMOXICILLIN\CLAVULANIC ACID
     Dates: start: 20210728
  20. PRAVASTATIN [Concomitant]
     Active Substance: PRAVASTATIN
  21. CEFTAZIDIME [Concomitant]
     Active Substance: CEFTAZIDIME
     Dates: start: 20210726, end: 20210728
  22. ALIZAPRIDE HYDROCHLORIDE [Concomitant]
     Active Substance: ALIZAPRIDE HYDROCHLORIDE
     Dates: start: 20210717, end: 20210717
  23. POLYETHYLENE GLYCOL 3350\POTASSIUM CHLORIDE\SODIUM BICARBONATE\SODIUM [Concomitant]
     Active Substance: POLYETHYLENE GLYCOL 3350\POTASSIUM CHLORIDE\SODIUM BICARBONATE\SODIUM CHLORIDE
  24. VITAMIN D [Concomitant]
     Active Substance: VITAMIN D NOS
     Dates: start: 20210716
  25. ALDACTONE [Concomitant]
     Active Substance: SPIRONOLACTONE
     Dates: start: 20230330
  26. ENALAPRIL [Concomitant]
     Active Substance: ENALAPRIL
     Dates: start: 20230330
  27. CARVEDILOL [Concomitant]
     Active Substance: CARVEDILOL
     Dates: start: 20230330
  28. ZOCOR [Concomitant]
     Active Substance: SIMVASTATIN
     Dates: start: 20210804
  29. FUROSEMIDE [Concomitant]
     Active Substance: FUROSEMIDE
  30. Beclometasone, Formoterol [Concomitant]
     Dates: start: 20210725
  31. CARBOPLATIN [Suspect]
     Active Substance: CARBOPLATIN
     Indication: Small cell lung cancer extensive stage
     Dates: start: 20210804
  32. ETOPOSIDE [Suspect]
     Active Substance: ETOPOSIDE
     Indication: Small cell lung cancer extensive stage
     Dates: start: 20210804
  33. ATEZOLIZUMAB [Suspect]
     Active Substance: ATEZOLIZUMAB
     Indication: Small cell lung cancer extensive stage
     Dosage: VISIT 1
     Dates: start: 20210804

REACTIONS (11)
  - Decreased appetite [Not Recovered/Not Resolved]
  - Oedema peripheral [Recovered/Resolved]
  - Neutropenia [Recovered/Resolved]
  - Fall [Unknown]
  - Hypokalaemia [Recovered/Resolved]
  - C-reactive protein increased [Recovered/Resolved]
  - Haematoma [Recovered/Resolved]
  - Acute kidney injury [Recovered/Resolved]
  - Hypothyroidism [Recovered/Resolved]
  - Diarrhoea [Recovered/Resolved]
  - Systemic inflammatory response syndrome [Recovered/Resolved]

NARRATIVE: CASE EVENT DATE: 20210717
